FAERS Safety Report 8823787 (Version 2)
Quarter: 2012Q4

REPORT INFORMATION
  Report Type: 
  Country: US (occurrence: US)
  Receive Date: 20121003
  Receipt Date: 20121011
  Transmission Date: 20130627
  Serious: Yes (Hospitalization)
  Sender: FDA-Public Use
  Company Number: US-009507513-1209USA011617

PATIENT
  Age: 19 Year
  Sex: Female
  Weight: 70.75 kg

DRUGS (2)
  1. IMPLANON [Suspect]
     Indication: CONTRACEPTION
     Dosage: 1 DF, UNK
     Route: 059
     Dates: start: 201009
  2. SYNTHROID [Concomitant]

REACTIONS (1)
  - Cerebrovascular accident [Unknown]
